FAERS Safety Report 7526277-1 (Version None)
Quarter: 2011Q2

REPORT INFORMATION
  Report Type: 
  Country: None (occurrence: None)
  Receive Date: 20110603
  Receipt Date: 20110603
  Transmission Date: 20111010
  Serious: Yes (Life-Threatening)
  Sender: FDA-Public Use
  Company Number: None

PATIENT
  Age: 1 Day
  Sex: Female
  Weight: 1.14 kg

DRUGS (10)
  1. CALCIUM GLUCONATE 10% APP [Suspect]
     Indication: PARENTERAL NUTRITION
     Dosage: 10.04ML/147.68ML ONCE IV DRIP
     Route: 041
     Dates: start: 20110318, end: 20110319
  2. STERILE WATER FOR INJECTION [Concomitant]
  3. PEDI MVI [Concomitant]
  4. TRACE-4 MULTIPLE TRACE [Suspect]
     Indication: PARENTERAL NUTRITION
     Dosage: 0.34ML/147.68ML ONCE IV DRIP
     Route: 041
     Dates: start: 20110318, end: 20110319
  5. L-CYSTEINE [Concomitant]
  6. D70 [Concomitant]
  7. NACHLORIDE [Concomitant]
  8. TROPHAMINE [Concomitant]
  9. KACETATE [Concomitant]
  10. NAPHOSPHATE [Concomitant]

REACTIONS (4)
  - HYPOKALAEMIA [None]
  - GLYCOSURIA [None]
  - HYPOGLYCAEMIA [None]
  - POLYURIA [None]
